FAERS Safety Report 25273985 (Version 2)
Quarter: 2025Q2

REPORT INFORMATION
  Report Type: Spontaneous
  Country: US (occurrence: US)
  Receive Date: 20250506
  Receipt Date: 20250512
  Transmission Date: 20250716
  Serious: Yes (Hospitalization, Other)
  Sender: DR REDDYS
  Company Number: US-DRL-USA-USA/2025/05/006661

PATIENT
  Age: 71 Year
  Sex: Male

DRUGS (7)
  1. AZACITIDINE [Suspect]
     Active Substance: AZACITIDINE
     Indication: Myelodysplastic syndrome/myeloproliferative neoplasm overlap syndrome
     Dosage: 75 MG/M2 DAILY FOR 7 DAYS OF A 28-DAY CYCLE (1ST CYCLE)
     Route: 058
     Dates: start: 202311
  2. AZACITIDINE [Suspect]
     Active Substance: AZACITIDINE
     Dates: start: 202312
  3. AZACITIDINE [Suspect]
     Active Substance: AZACITIDINE
     Dosage: THE PATIENT COMPLETED THE 3RD CYCLE OF 5-AZACITIDINE AT 50 MG/M2 SUBCUTANEOUSLY DAILY FOR 7 DAYS OF
     Route: 058
     Dates: end: 202402
  4. LEVETIRACETAM [Concomitant]
     Active Substance: LEVETIRACETAM
     Indication: Product used for unknown indication
  5. LOSARTAN [Concomitant]
     Active Substance: LOSARTAN
     Indication: Product used for unknown indication
  6. ASPIRIN [Concomitant]
     Active Substance: ASPIRIN
     Indication: Product used for unknown indication
  7. ATORVASTATIN [Concomitant]
     Active Substance: ATORVASTATIN
     Indication: Product used for unknown indication

REACTIONS (1)
  - Angioedema [Recovered/Resolved]
